FAERS Safety Report 13738561 (Version 1)
Quarter: 2017Q3

REPORT INFORMATION
  Report Type: Report from Study
  Country: US (occurrence: US)
  Receive Date: 20170710
  Receipt Date: 20170710
  Transmission Date: 20171127
  Serious: No
  Sender: FDA-Public Use
  Company Number: US-SAOL THERAPEUTICS-2016SAO00266

PATIENT
  Age: 59 Year
  Sex: Male

DRUGS (12)
  1. COMPOUNDED BACLOFEN [Suspect]
     Active Substance: BACLOFEN
     Indication: INTERVERTEBRAL DISC DEGENERATION
     Dosage: 65.08 ?G, \DAY
     Route: 037
     Dates: start: 20151008, end: 20151019
  2. BUPIVACAINE. [Suspect]
     Active Substance: BUPIVACAINE
     Dosage: 15.036 MG\DAY
     Dates: start: 20151119, end: 20151210
  3. COMPOUNDED BACLOFEN [Suspect]
     Active Substance: BACLOFEN
     Indication: PAIN
     Dosage: 85.01 ?G, \DAY
     Route: 037
     Dates: start: 20151019, end: 20151119
  4. COMPOUNDED BACLOFEN [Suspect]
     Active Substance: BACLOFEN
     Dosage: 120.16 ?G, \DAY
     Route: 037
     Dates: start: 20151210
  5. BUPIVACAINE. [Suspect]
     Active Substance: BUPIVACAINE
     Dosage: 9.763 MG,\DAY
     Dates: start: 20151008, end: 20151019
  6. DILAUDID [Suspect]
     Active Substance: HYDROMORPHONE HYDROCHLORIDE
     Dosage: 0.425 MG, \DAY
     Dates: start: 20151019, end: 20151210
  7. DILAUDID [Suspect]
     Active Substance: HYDROMORPHONE HYDROCHLORIDE
     Dosage: 0.3254 MG, \DAY
     Dates: start: 20151008, end: 20151019
  8. DILAUDID [Suspect]
     Active Substance: HYDROMORPHONE HYDROCHLORIDE
     Dosage: 0.6008 MG, \DAY
     Dates: start: 20151210
  9. BUPIVACAINE. [Suspect]
     Active Substance: BUPIVACAINE
     Dosage: 18.023 MG, \DAY
     Dates: start: 20151210
  10. COMPOUNDED BACLOFEN [Suspect]
     Active Substance: BACLOFEN
     Dosage: 100.24 ?G\DAY
     Dates: start: 20151119, end: 20151210
  11. DILAUDID [Suspect]
     Active Substance: HYDROMORPHONE HYDROCHLORIDE
     Dosage: 0.512 MG\DAY
     Route: 037
     Dates: start: 20151119, end: 20151210
  12. BUPIVACAINE. [Suspect]
     Active Substance: BUPIVACAINE
     Dosage: 12.751 MG, \DAY
     Dates: start: 20151019, end: 20151119

REACTIONS (7)
  - Dizziness [Recovered/Resolved]
  - Nausea [Not Recovered/Not Resolved]
  - Asthenia [Recovered/Resolved]
  - Adverse drug reaction [Recovered/Resolved]
  - Hypoaesthesia [Not Recovered/Not Resolved]
  - Discomfort [Not Recovered/Not Resolved]
  - Off label use [Recovered/Resolved]

NARRATIVE: CASE EVENT DATE: 20151223
